FAERS Safety Report 6546602-8 (Version None)
Quarter: 2010Q1

REPORT INFORMATION
  Report Type: 
  Country: None (occurrence: None)
  Receive Date: 20100122
  Receipt Date: 20100112
  Transmission Date: 20100710
  Serious: Yes (Other)
  Sender: FDA-Public Use
  Company Number: FR-BAYER-201011769GPV

PATIENT
  Age: 55 Year
  Sex: Female

DRUGS (2)
  1. MIRENA [Suspect]
     Indication: DRUG USE FOR UNKNOWN INDICATION
     Route: 015
     Dates: start: 20091201
  2. MIRENA [Suspect]
     Route: 015

REACTIONS (5)
  - BLOOD PRESSURE ABNORMAL [None]
  - BREAST PAIN [None]
  - HEADACHE [None]
  - SWELLING [None]
  - VAGINAL HAEMORRHAGE [None]
